FAERS Safety Report 15133554 (Version 2)
Quarter: 2018Q3

REPORT INFORMATION
  Report Type: Spontaneous
  Country: US (occurrence: US)
  Receive Date: 20180712
  Receipt Date: 20180817
  Transmission Date: 20181010
  Serious: No
  Sender: FDA-Public Use
  Company Number: US-ASTRAZENECA-2018SE77847

PATIENT
  Age: 55 Year
  Sex: Female
  Weight: 74.8 kg

DRUGS (17)
  1. RANITIDINE. [Concomitant]
     Active Substance: RANITIDINE
     Indication: GASTROOESOPHAGEAL REFLUX DISEASE
     Route: 048
  2. LOW DOSE ASPIRIN [Concomitant]
     Active Substance: ASPIRIN
     Indication: CARDIAC DISORDER
     Route: 048
     Dates: start: 2016
  3. NORTRIPTYLINE [Concomitant]
     Active Substance: NORTRIPTYLINE
     Indication: PAIN
     Dosage: 25.0MG AS REQUIRED
     Route: 048
  4. COQ10 [Concomitant]
     Active Substance: UBIDECARENONE
     Indication: DRUG INTERACTION
     Route: 048
  5. LEVOTHYROXINE. [Concomitant]
     Active Substance: LEVOTHYROXINE
     Indication: THYROID DISORDER
     Route: 048
  6. VIVELLE?DOT [Concomitant]
     Active Substance: ESTRADIOL
     Indication: BLOOD OESTROGEN
     Route: 062
  7. PROVENTIL ALBUTEROL INHALER [Concomitant]
     Indication: ASTHMA
     Route: 055
  8. PROMETHAZINE [Concomitant]
     Active Substance: PROMETHAZINE\PROMETHAZINE HYDROCHLORIDE
     Indication: NAUSEA
     Dosage: 25.0MG AS REQUIRED
  9. PRAVASTATIN. [Concomitant]
     Active Substance: PRAVASTATIN
     Indication: BLOOD CHOLESTEROL INCREASED
     Route: 048
  10. MAXALT MELT [Concomitant]
     Indication: MIGRAINE
     Dosage: 10.0MG AS REQUIRED
     Route: 048
  11. ALBUTEROL SULFATE INHALER [Concomitant]
     Indication: ASTHMA
     Dosage: 6.7 GM, 2 PUFFS BY MOUTH EVERY 4 TO 6 HOURS AS NEEDED
  12. BYDUREON [Suspect]
     Active Substance: EXENATIDE
     Indication: TYPE 2 DIABETES MELLITUS
     Route: 058
     Dates: start: 2018
  13. TIZANIDINE. [Concomitant]
     Active Substance: TIZANIDINE
     Indication: MUSCLE SPASMS
     Route: 048
     Dates: start: 2016
  14. NORTRIPTYLINE [Concomitant]
     Active Substance: NORTRIPTYLINE
     Indication: INSOMNIA
     Dosage: 25.0MG AS REQUIRED
     Route: 048
  15. CITRACAL [Concomitant]
     Active Substance: CALCIUM CITRATE
     Indication: CALCIUM DEFICIENCY
     Route: 048
     Dates: start: 2001
  16. ONDANSETRON [Concomitant]
     Active Substance: ONDANSETRON
     Indication: NAUSEA
     Dosage: 4.0MG AS REQUIRED
     Route: 048
     Dates: start: 2016
  17. LORATADINE. [Concomitant]
     Active Substance: LORATADINE
     Indication: MULTIPLE ALLERGIES
     Route: 048

REACTIONS (19)
  - Asthenia [Recovering/Resolving]
  - Device issue [Unknown]
  - Injection site bruising [Not Recovered/Not Resolved]
  - Injection site injury [Unknown]
  - Hypersomnia [Recovering/Resolving]
  - Device leakage [Unknown]
  - Pain [Unknown]
  - Feeling abnormal [Unknown]
  - Injection site erythema [Unknown]
  - Intentional product misuse [Unknown]
  - Nodule [Not Recovered/Not Resolved]
  - Injection site scar [Unknown]
  - Blood glucose increased [Unknown]
  - Injection site nodule [Not Recovered/Not Resolved]
  - Injection site pruritus [Unknown]
  - Injection site inflammation [Unknown]
  - Injection site swelling [Unknown]
  - Injection site pain [Unknown]
  - Fatigue [Recovering/Resolving]

NARRATIVE: CASE EVENT DATE: 2018
